FAERS Safety Report 5989665-0 (Version None)
Quarter: 2008Q4

REPORT INFORMATION
  Report Type: 
  Country: None (occurrence: None)
  Receive Date: 20081208
  Receipt Date: 20081125
  Transmission Date: 20090506
  Serious: Yes (Hospitalization)
  Sender: FDA-Public Use
  Company Number: IMP_03974_2008

PATIENT
  Age: 65 Year
  Sex: Female

DRUGS (2)
  1. CHLOROQUINE PHOSPHATE [Suspect]
     Indication: DRUG USE FOR UNKNOWN INDICATION
     Dosage: (250 MG QD)
     Dates: start: 20040101
  2. NSAID'S [Concomitant]

REACTIONS (3)
  - CEREBELLAR ATAXIA [None]
  - HEMIPARESIS [None]
  - NEURODEGENERATIVE DISORDER [None]
